FAERS Safety Report 6354111-4 (Version None)
Quarter: 2009Q3

REPORT INFORMATION
  Report Type: 
  Country: None (occurrence: None)
  Receive Date: 20090909
  Receipt Date: 20090831
  Transmission Date: 20100115
  Serious: Yes (Death, Life-Threatening, Hospitalization)
  Sender: FDA-Public Use
  Company Number: TPA2009A01869

PATIENT
  Age: 70 Year
  Sex: Male
  Weight: 95.2 kg

DRUGS (6)
  1. ULORIC [Suspect]
     Indication: GOUT
     Dosage: 40 MG, 1 IN 1 D, PER ORAL
     Route: 048
     Dates: start: 20090514, end: 20090706
  2. ULORIC [Suspect]
     Indication: HYPERURICAEMIA
     Dosage: 40 MG, 1 IN 1 D, PER ORAL
     Route: 048
     Dates: start: 20090514, end: 20090706
  3. DIOVAN [Concomitant]
  4. FUROSEMIDE [Concomitant]
  5. OVER THE COUNTER NSAID (NSAID'S) [Concomitant]
  6. UNKNOWN [10057097- DRUG USE FOR UNKNOWN INDICATION] V.12.0] [Concomitant]

REACTIONS (12)
  - ACTIVATED PARTIAL THROMBOPLASTIN TIME PROLONGED [None]
  - ALCOHOL WITHDRAWAL SYNDROME [None]
  - DECREASED APPETITE [None]
  - HAEMOGLOBIN DECREASED [None]
  - HEPATIC CIRRHOSIS [None]
  - HEPATITIS [None]
  - HEPATORENAL SYNDROME [None]
  - HYPOTENSION [None]
  - INTERNATIONAL NORMALISED RATIO INCREASED [None]
  - LIPASE INCREASED [None]
  - LYMPHADENOPATHY [None]
  - PLATELET COUNT DECREASED [None]
